FAERS Safety Report 8512020-6 (Version None)
Quarter: 2012Q3

REPORT INFORMATION
  Report Type: 
  Country: None (occurrence: None)
  Receive Date: 20120716
  Receipt Date: 20120711
  Transmission Date: 20120928
  Serious: Yes (Other)
  Sender: FDA-Public Use
  Company Number: PHEH2006US10884

PATIENT
  Sex: Female
  Weight: 77.098 kg

DRUGS (38)
  1. RESTORIL [Concomitant]
  2. VALTREX [Concomitant]
  3. ADRIAMYCIN PFS [Concomitant]
     Indication: MULTIPLE MYELOMA
     Dates: start: 19951201, end: 19960301
  4. EPOGEN [Concomitant]
     Indication: ANAEMIA
     Dosage: UNK, PRN
  5. MEPERIDINE W/PROMETHAZINE [Concomitant]
     Dosage: PRN
     Route: 048
  6. TOPROL-XL [Concomitant]
     Indication: HYPERTENSION
     Dosage: 50 MG, QD
     Route: 048
  7. TOPROL-XL [Concomitant]
     Dosage: 100 MG, QD
  8. AREDIA [Suspect]
     Indication: MULTIPLE MYELOMA
     Dosage: 90 MG, QMO
     Dates: start: 19951101
  9. PROCRIT [Concomitant]
     Dosage: QD
     Route: 042
  10. NEXIUM [Concomitant]
     Dosage: 40 MG, QD
  11. IMURAN [Concomitant]
     Indication: SARCOIDOSIS
     Dosage: 50 MG, TID
  12. MELPHALAN HYDROCHLORIDE [Concomitant]
     Dates: start: 19961001
  13. NEXIUM [Concomitant]
     Indication: GASTROOESOPHAGEAL REFLUX DISEASE
     Dosage: 20 MG, QD
     Route: 048
  14. LORTAB [Concomitant]
     Dosage: PRN
  15. AZATHIOPRINE [Concomitant]
     Indication: SARCOIDOSIS
     Dosage: 50 MG, TID
  16. ARANESP [Concomitant]
     Dosage: 300 UNITS, TWICE MONTHLY
  17. METHYLPREDNISOLONE [Concomitant]
  18. PROCARDIA XL [Concomitant]
     Indication: HYPERTENSION
     Dosage: 30 MG, QD
     Route: 048
  19. DIFLUCAN [Concomitant]
  20. GUAIFENESIN [Concomitant]
     Dosage: 400 MG, TID
     Route: 048
  21. DIAZEPAM [Concomitant]
     Dosage: 5 MG, BID
     Route: 048
  22. BLOOD TRANSFUSION, AUXILIARY PRODUCTS [Concomitant]
     Dosage: UNK, UNK
  23. CLONIDINE [Concomitant]
     Indication: HYPERTENSION
     Dosage: 0.1 MG, QHS
  24. AXID [Concomitant]
     Dosage: 150 MG, BID
  25. MELPHALAN HYDROCHLORIDE [Concomitant]
     Dates: start: 19970201
  26. CATAPRES [Concomitant]
     Dosage: 0.1 MG, QD
     Route: 048
  27. FAMOTIDINE [Concomitant]
     Dosage: 20 MG, BID
     Route: 048
  28. AZASAN [Concomitant]
     Dosage: 50 MG, QD
  29. AREDIA [Suspect]
     Dosage: 90 MG, UNK
     Dates: start: 20020501
  30. DEXAMETHASONE [Concomitant]
     Indication: MULTIPLE MYELOMA
     Dosage: 40 MG FOR 4 DAYS MONTHLY
     Route: 048
     Dates: start: 19951101, end: 20000111
  31. BACTRIM DS [Concomitant]
  32. PROCRIT                            /00909301/ [Concomitant]
  33. ZYRTEC-D 12 HOUR [Concomitant]
     Dosage: 120 MG, BID
     Route: 048
  34. ZOMETA [Suspect]
     Dosage: 4 MG, UNK
     Dates: end: 20020501
  35. INTERFERON [Concomitant]
     Indication: MULTIPLE MYELOMA
     Dates: end: 20000111
  36. THALIDOMIDE [Concomitant]
     Indication: MULTIPLE MYELOMA
     Dosage: 100 MG, QD
     Route: 048
     Dates: start: 20000111
  37. VINCRISTINE [Concomitant]
     Indication: MULTIPLE MYELOMA
     Dates: start: 19951201, end: 19960301
  38. AMOXICILLIN [Concomitant]
     Dosage: 875 MG, BID
     Route: 048

REACTIONS (90)
  - LYMPHADENOPATHY [None]
  - SWELLING [None]
  - BLINDNESS [None]
  - DIZZINESS [None]
  - RENAL DISORDER [None]
  - RIGHT VENTRICULAR HYPERTROPHY [None]
  - ATELECTASIS [None]
  - BLOOD POTASSIUM INCREASED [None]
  - SEPSIS [None]
  - NEPHROSCLEROSIS [None]
  - PEAU D'ORANGE [None]
  - MEMORY IMPAIRMENT [None]
  - DECREASED INTEREST [None]
  - ABSCESS [None]
  - MULTIPLE SCLEROSIS [None]
  - HYDROCEPHALUS [None]
  - PULMONARY ARTERY DILATATION [None]
  - MONOCYTE COUNT INCREASED [None]
  - METAPLASIA [None]
  - GASTRIC POLYPS [None]
  - MUSCULAR WEAKNESS [None]
  - ARTHRALGIA [None]
  - INSOMNIA [None]
  - PAIN [None]
  - MUCOSAL INFLAMMATION [None]
  - VOMITING [None]
  - CONSTIPATION [None]
  - CARBON DIOXIDE INCREASED [None]
  - CSF PROTEIN INCREASED [None]
  - CHEST PAIN [None]
  - NASAL SEPTUM DEVIATION [None]
  - POLLAKIURIA [None]
  - MENTAL STATUS CHANGES [None]
  - COLONIC POLYP [None]
  - MUSCLE SPASMS [None]
  - GENERAL PHYSICAL HEALTH DETERIORATION [None]
  - INFLAMMATION [None]
  - PARANASAL SINUS BENIGN NEOPLASM [None]
  - SARCOIDOSIS [None]
  - UTERINE LEIOMYOMA [None]
  - OSTEOARTHRITIS [None]
  - PATHOLOGICAL FRACTURE [None]
  - PNEUMONIA [None]
  - SINUS POLYP [None]
  - WEIGHT INCREASED [None]
  - MUSCLE ATROPHY [None]
  - VISUAL IMPAIRMENT [None]
  - HYPERTENSION [None]
  - HEADACHE [None]
  - ALKALOSIS [None]
  - PULMONARY OEDEMA [None]
  - GALLBLADDER DISORDER [None]
  - BLOOD ALBUMIN DECREASED [None]
  - GAIT DISTURBANCE [None]
  - CERVICITIS [None]
  - OSTEONECROSIS OF JAW [None]
  - OPTIC NEURITIS [None]
  - HYPOKALAEMIA [None]
  - PLEURAL EFFUSION [None]
  - INTESTINAL POLYP [None]
  - ANXIETY [None]
  - OSTEOMYELITIS [None]
  - PYREXIA [None]
  - TUBERCULOSIS [None]
  - GRANULOMA [None]
  - ABDOMINAL PAIN [None]
  - NAUSEA [None]
  - CARDIAC FAILURE CONGESTIVE [None]
  - BLOOD CALCIUM DECREASED [None]
  - FIBROCYSTIC BREAST DISEASE [None]
  - RIB FRACTURE [None]
  - WALKING AID USER [None]
  - METASTASES TO CENTRAL NERVOUS SYSTEM [None]
  - MUSCLE CONTRACTIONS INVOLUNTARY [None]
  - ROTATOR CUFF SYNDROME [None]
  - EXCESSIVE GRANULATION TISSUE [None]
  - BONE DISORDER [None]
  - APLASTIC ANAEMIA [None]
  - NASAL DISORDER [None]
  - MUSCULOSKELETAL PAIN [None]
  - UPPER RESPIRATORY TRACT INFECTION [None]
  - RENAL FAILURE CHRONIC [None]
  - SINUS RHYTHM [None]
  - RADIATION SKIN INJURY [None]
  - BONE LESION [None]
  - HAEMATOCHEZIA [None]
  - OVARIAN ATROPHY [None]
  - GASTRITIS [None]
  - MELANOSIS COLI [None]
  - SKIN LESION [None]
